FAERS Safety Report 24177496 (Version 5)
Quarter: 2025Q4

REPORT INFORMATION
  Report Type: Spontaneous
  Country: JP (occurrence: JP)
  Receive Date: 20240806
  Receipt Date: 20251229
  Transmission Date: 20260117
  Serious: Yes (Other)
  Sender: GENMAB
  Company Number: JP-GENMAB-2024-02743

PATIENT
  Age: 87 Year
  Sex: Male

DRUGS (5)
  1. EPKINLY [Suspect]
     Active Substance: EPCORITAMAB-BYSP
     Indication: Diffuse large B-cell lymphoma
     Dosage: 0.16 MILLIGRAM, SINGLE, CYCLE1 DAY1
     Route: 058
     Dates: start: 202402, end: 202402
  2. EPKINLY [Suspect]
     Active Substance: EPCORITAMAB-BYSP
     Dosage: 0.8 MILLIGRAM, SINGLE, CYCLE1 DAY8
     Route: 058
     Dates: start: 2024, end: 2024
  3. EPKINLY [Suspect]
     Active Substance: EPCORITAMAB-BYSP
     Dosage: 48 MILLIGRAM, FROM CYCLE1 DAY15
     Route: 058
     Dates: start: 2024
  4. PREDNISOLONE [Concomitant]
     Active Substance: PREDNISOLONE
     Indication: Premedication
     Dosage: 100 MILLIGRAM/DAY, ON DAY 1, DAY 2, DAY 3 AND DAY 4 OF ADMINISTRATION OF EPKINLY (CYCLE 1 ONLY)
     Dates: start: 202402, end: 2024
  5. ATOVAQUONE [Concomitant]
     Active Substance: ATOVAQUONE
     Indication: Prophylaxis
     Dosage: UNK, ORAL
     Route: 048

REACTIONS (8)
  - Hypogammaglobulinaemia [Unknown]
  - Cytomegalovirus enterocolitis [Recovering/Resolving]
  - Platelet count decreased [Unknown]
  - Cytomegalovirus test positive [Recovering/Resolving]
  - Herpes zoster [Recovering/Resolving]
  - Body temperature increased [Unknown]
  - Pyrexia [Unknown]
  - Pyrexia [Recovering/Resolving]

NARRATIVE: CASE EVENT DATE: 20240101
